FAERS Safety Report 4970718-0 (Version None)
Quarter: 2006Q2

REPORT INFORMATION
  Report Type: 
  Country: None (occurrence: None)
  Receive Date: 20060411
  Receipt Date: 20060411
  Transmission Date: 20061013
  Serious: Yes (Other)
  Sender: FDA-Public Use
  Company Number: None

PATIENT
  Age: 82 Year
  Sex: Male
  Weight: 63.5 kg

DRUGS (1)
  1. PERSANTINE [Suspect]
     Indication: CARDIAC STRESS TEST
     Dosage: INTRAVEN
     Route: 042
     Dates: start: 20060321, end: 20060321

REACTIONS (4)
  - BRADYCARDIA [None]
  - HYPOTENSION [None]
  - NAUSEA [None]
  - SYNCOPE [None]
